FAERS Safety Report 25305579 (Version 1)
Quarter: 2025Q2

REPORT INFORMATION
  Report Type: Spontaneous
  Country: CN (occurrence: CN)
  Receive Date: 20250513
  Receipt Date: 20250513
  Transmission Date: 20250717
  Serious: Yes (Hospitalization)
  Sender: BAXTER
  Company Number: None

PATIENT
  Age: 54 Year
  Sex: Female
  Weight: 51.9 kg

DRUGS (4)
  1. CYCLOPHOSPHAMIDE [Suspect]
     Active Substance: CYCLOPHOSPHAMIDE
     Indication: Breast cancer female
     Dosage: 0.9 G, QD (IMPORT), (WITH SODIUM CHLORIDE INJECTION, ONCE A DAY)
     Route: 041
     Dates: start: 20250425, end: 20250425
  2. EPIRUBICIN [Suspect]
     Active Substance: EPIRUBICIN
     Indication: Breast cancer female
     Dosage: 150.0000 MG, QD, (WITH SODIUM CHLORIDE INJECTION, ONCE A DAY)
     Route: 041
     Dates: start: 20250425, end: 20250425
  3. SODIUM CHLORIDE [Suspect]
     Active Substance: SODIUM CHLORIDE
     Indication: Breast cancer female
     Dosage: 100.0000 ML, QD (ONCE DAILY) WITH CYCLOPHOSPHAMIDE FOR INJECTION (IMPORT), APPROVAL NUMBER: H2000320
     Route: 041
     Dates: start: 20250425, end: 20250425
  4. SODIUM CHLORIDE [Suspect]
     Active Substance: SODIUM CHLORIDE
     Dosage: 100.0000 ML, QD (ONCE DAILY) WITH EPIRUBICIN HYDROCHLORIDE FOR INJECTION, APPROVAL NUMBER: H20003204
     Route: 041
     Dates: start: 20250425, end: 20250425

REACTIONS (5)
  - Decreased appetite [Recovered/Resolved]
  - Asthenia [Recovered/Resolved]
  - Constipation [Recovered/Resolved]
  - White blood cell count decreased [Recovered/Resolved]
  - Neutrophil count decreased [Recovered/Resolved]

NARRATIVE: CASE EVENT DATE: 20250503
